FAERS Safety Report 5128584-9 (Version None)
Quarter: 2006Q4

REPORT INFORMATION
  Report Type: 
  Country: None (occurrence: None)
  Receive Date: 20061017
  Receipt Date: 20061009
  Transmission Date: 20070319
  Serious: Yes (Other)
  Sender: FDA-Public Use
  Company Number: AU-GLAXOSMITHKLINE-B0441974A

PATIENT
  Age: 15 Year
  Sex: Male

DRUGS (2)
  1. FLUTICASONE PROPIONATE [Suspect]
     Indication: ASTHMA
     Route: 055
  2. CHLORAL HYDRATE [Concomitant]
     Indication: SEDATION
     Route: 065

REACTIONS (12)
  - ADRENAL SUPPRESSION [None]
  - AMNESIA [None]
  - CONDITION AGGRAVATED [None]
  - CSF PRESSURE INCREASED [None]
  - HEADACHE [None]
  - HYPERTENSION [None]
  - INTRACRANIAL PRESSURE INCREASED [None]
  - LETHARGY [None]
  - PYREXIA [None]
  - RETINAL EXUDATES [None]
  - VISION BLURRED [None]
  - VOMITING [None]
